FAERS Safety Report 23898165 (Version 3)
Quarter: 2024Q2

REPORT INFORMATION
  Report Type: Report from Study
  Country: GB (occurrence: GB)
  Receive Date: 20240524
  Receipt Date: 20240626
  Transmission Date: 20240716
  Serious: Yes (Hospitalization, Other)
  Sender: FDA-Public Use
  Company Number: GB-BAYER-2024A072788

PATIENT
  Age: 59 Year
  Sex: Female

DRUGS (3)
  1. REGORAFENIB [Suspect]
     Active Substance: REGORAFENIB
     Indication: Cholangiocarcinoma
     Dosage: 80 MG, QD
     Dates: start: 20240319, end: 20240323
  2. REGORAFENIB [Suspect]
     Active Substance: REGORAFENIB
     Indication: Cholangiocarcinoma
     Dosage: 40 MG
     Dates: start: 20240423
  3. BARIUM SULFATE [Concomitant]
     Active Substance: BARIUM SULFATE
     Indication: Biliary sepsis
     Dosage: UNK
     Route: 042
     Dates: start: 202403

REACTIONS (6)
  - Biliary sepsis [Recovered/Resolved]
  - Liver abscess [Recovered/Resolved]
  - Purulent discharge [Recovered/Resolved]
  - Enterobacter test positive [Recovered/Resolved]
  - Pyrexia [Recovered/Resolved]
  - Malaise [Recovered/Resolved]

NARRATIVE: CASE EVENT DATE: 20240301
